FAERS Safety Report 6814868-2 (Version None)
Quarter: 2010Q3

REPORT INFORMATION
  Report Type: 
  Country: None (occurrence: None)
  Receive Date: 20100702
  Receipt Date: 20100701
  Transmission Date: 20110219
  Serious: Yes (Hospitalization, Disabling)
  Sender: FDA-Public Use
  Company Number: D0067708A

PATIENT
  Sex: Female

DRUGS (4)
  1. ARIXTRA [Suspect]
     Indication: THROMBOSIS
     Dosage: 7.5MG UNKNOWN
     Route: 065
     Dates: start: 20100412, end: 20100418
  2. ASPIRIN [Concomitant]
     Route: 065
  3. CLOPIDOGREL [Concomitant]
     Route: 065
  4. ANTIBIOTIC [Concomitant]
     Route: 065

REACTIONS (4)
  - EYE HAEMORRHAGE [None]
  - NEOPLASM [None]
  - RETINAL DETACHMENT [None]
  - VISUAL IMPAIRMENT [None]
